FAERS Safety Report 11718297 (Version 1)
Quarter: 2015Q4

REPORT INFORMATION
  Report Type: Spontaneous
  Country: None (occurrence: None)
  Receive Date: 20151109
  Receipt Date: 20151109
  Transmission Date: 20160304
  Serious: No
  Sender: FDA-Public Use
  Company Number: None

PATIENT
  Age: 30 Year
  Sex: Female
  Weight: 80 kg

DRUGS (2)
  1. CLINDAMYCIN [Suspect]
     Active Substance: CLINDAMYCIN\CLINDAMYCIN PHOSPHATE
     Indication: VAGINAL INFECTION
     Dosage: 1 SUPPOSITORY BEFORE BED
     Route: 067
  2. ELTROXIN [Concomitant]
     Active Substance: LEVOTHYROXINE

REACTIONS (1)
  - Headache [None]

NARRATIVE: CASE EVENT DATE: 20151106
